FAERS Safety Report 21885413 (Version 1)
Quarter: 2023Q1

REPORT INFORMATION
  Report Type: Spontaneous
  Country: US (occurrence: US)
  Receive Date: 20230119
  Receipt Date: 20230119
  Transmission Date: 20230417
  Serious: No
  Sender: FDA-Public Use
  Company Number: US-SA-SAC20230117001241

PATIENT
  Sex: Female

DRUGS (19)
  1. DUPIXENT [Suspect]
     Active Substance: DUPILUMAB
     Indication: Dermatitis atopic
     Dosage: 600 MG, 1X
     Route: 058
     Dates: start: 20221213, end: 20221213
  2. DUPIXENT [Suspect]
     Active Substance: DUPILUMAB
     Dosage: 300 MG, QOW
     Route: 058
     Dates: start: 202212
  3. ACCOLATE [Concomitant]
     Active Substance: ZAFIRLUKAST
  4. AZELASTINE [Concomitant]
     Active Substance: AZELASTINE
  5. CLINDAMYCIN [Concomitant]
     Active Substance: CLINDAMYCIN
  6. EPINEPHRINE [Concomitant]
     Active Substance: EPINEPHRINE
  7. IPRATROPIUM [Concomitant]
     Active Substance: IPRATROPIUM
  8. CLARITHROMYCIN [Concomitant]
     Active Substance: CLARITHROMYCIN
  9. MUCINEX SINUS [CHLORPHENAMINE MALEATE;PARACETAMOL;PHENYLEPHRINE HYDROC [Concomitant]
  10. NOVOLOG [Concomitant]
     Active Substance: INSULIN ASPART
  11. OTEZLA [Concomitant]
     Active Substance: APREMILAST
  12. PENNSAID [Concomitant]
     Active Substance: DICLOFENAC SODIUM
  13. TRIAMCINOLONE [Concomitant]
     Active Substance: TRIAMCINOLONE
  14. PROAIR RESPICLICK [Concomitant]
     Active Substance: ALBUTEROL SULFATE
  15. SUDAFED PE SINUS CONGESTION [Concomitant]
     Active Substance: PHENYLEPHRINE HYDROCHLORIDE
  16. SUMATRIPTAN [Concomitant]
     Active Substance: SUMATRIPTAN
  17. VITAMIN B12 [Concomitant]
     Active Substance: CYANOCOBALAMIN
  18. VITAMIN D NOS [Concomitant]
     Active Substance: VITAMIN D NOS
  19. ZYRTEC [Concomitant]
     Active Substance: CETIRIZINE HYDROCHLORIDE

REACTIONS (1)
  - Rash [Not Recovered/Not Resolved]
